FAERS Safety Report 4706036-5 (Version None)
Quarter: 2005Q2

REPORT INFORMATION
  Report Type: 
  Country: None (occurrence: None)
  Receive Date: 20050627
  Receipt Date: 20040712
  Transmission Date: 20051028
  Serious: Yes (Other)
  Sender: FDA-Public Use
  Company Number: US-JNJFOC-20040502393

PATIENT
  Age: 40 Year
  Sex: Male
  Weight: 80.7403 kg

DRUGS (1)
  1. FENTANYL [Suspect]
     Indication: PAIN
     Dosage: 75 UG/HR, TRANSDERMAL
     Route: 062

REACTIONS (4)
  - DIZZINESS [None]
  - HEADACHE [None]
  - HYPERSOMNIA [None]
  - MALAISE [None]
